FAERS Safety Report 5565864-7 (Version None)
Quarter: 2007Q4

REPORT INFORMATION
  Report Type: 
  Country: None (occurrence: None)
  Receive Date: 20071213
  Receipt Date: 20071128
  Transmission Date: 20080405
  Serious: Yes (Other)
  Sender: FDA-Public Use
  Company Number: 2007S1012455

PATIENT
  Age: 54 Year
  Sex: Male

DRUGS (1)
  1. DILTIAZEM [Suspect]

REACTIONS (2)
  - DERMATITIS EXFOLIATIVE [None]
  - DRUG ERUPTION [None]
